FAERS Safety Report 8102004-4 (Version None)
Quarter: 2012Q1

REPORT INFORMATION
  Report Type: 
  Country: None (occurrence: None)
  Receive Date: 20120131
  Receipt Date: 20120124
  Transmission Date: 20120608
  Serious: Yes (Hospitalization, Other)
  Sender: FDA-Public Use
  Company Number: DE-ABBOTT-11P-062-0734953-00

PATIENT
  Age: 31 Year
  Sex: Female
  Weight: 58 kg

DRUGS (5)
  1. METHOTREXATE [Concomitant]
     Indication: CROHN'S DISEASE
  2. PANTOPRAZOLE [Concomitant]
     Indication: PRODUCT USED FOR UNKNOWN INDICATION
     Route: 048
  3. ACETAMINOPHEN [Concomitant]
     Indication: PRODUCT USED FOR UNKNOWN INDICATION
     Route: 048
  4. HUMIRA [Suspect]
     Indication: CROHN'S DISEASE
     Route: 058
     Dates: start: 20081216, end: 20110501
  5. SAB SIMPLEX [Concomitant]
     Indication: PRODUCT USED FOR UNKNOWN INDICATION

REACTIONS (6)
  - SUTURE RUPTURE [None]
  - NAUSEA [None]
  - INFLAMMATION [None]
  - VOMITING [None]
  - ILEAL STENOSIS [None]
  - PURULENT DISCHARGE [None]
